FAERS Safety Report 14107993 (Version 1)
Quarter: 2017Q4

REPORT INFORMATION
  Report Type: Spontaneous
  Country: US (occurrence: US)
  Receive Date: 20171019
  Receipt Date: 20171019
  Transmission Date: 20180321
  Serious: No
  Sender: FDA-Public Use
  Company Number: US-LANNETT COMPANY, INC.-US-2016LAN001692

PATIENT

DRUGS (2)
  1. FLUPHENAZINE HYDROCHLORIDE (1MG) [Suspect]
     Active Substance: FLUPHENAZINE HYDROCHLORIDE
     Indication: PRURITUS
     Dosage: 1 MG, UNK
     Dates: end: 201608
  2. FLUPHENAZINE HYDROCHLORIDE (1MG) [Suspect]
     Active Substance: FLUPHENAZINE HYDROCHLORIDE
     Indication: SKIN BURNING SENSATION

REACTIONS (3)
  - Anxiety [Not Recovered/Not Resolved]
  - Retching [Not Recovered/Not Resolved]
  - Vomiting [Not Recovered/Not Resolved]

NARRATIVE: CASE EVENT DATE: 20160905
